FAERS Safety Report 9610593 (Version 2)
Quarter: 2013Q4

REPORT INFORMATION
  Report Type: Spontaneous
  Country: US (occurrence: US)
  Receive Date: 20131009
  Receipt Date: 20131011
  Transmission Date: 20140711
  Serious: Yes (Other)
  Sender: FDA-Public Use
  Company Number: CHPA2013US015316

PATIENT
  Age: 85 Year
  Sex: Female

DRUGS (7)
  1. VOLTAREN GEL [Suspect]
     Indication: PAIN IN EXTREMITY
     Dosage: UNK, AT LEAST ONCE A DAY
     Route: 061
     Dates: start: 2012
  2. VOLTAREN GEL [Suspect]
     Indication: OFF LABEL USE
  3. WARFARIN [Concomitant]
     Indication: THROMBOSIS
     Dosage: UNK, UNK
     Route: 065
  4. DONEPEZIL [Concomitant]
     Dosage: UNK, UNK
     Route: 065
     Dates: start: 2012
  5. SIMVASTATIN [Concomitant]
     Indication: BLOOD CHOLESTEROL INCREASED
     Dosage: UNK, UNK
     Route: 065
  6. DIOVAN [Concomitant]
     Dosage: UNK, UNK
     Route: 048
  7. THYROID PREPARATIONS [Concomitant]
     Indication: THYROID DISORDER
     Dosage: UNK, UNK
     Route: 065

REACTIONS (2)
  - Dementia Alzheimer^s type [Not Recovered/Not Resolved]
  - Therapeutic response unexpected [Unknown]
